FAERS Safety Report 23248273 (Version 1)
Quarter: 2023Q4

REPORT INFORMATION
  Report Type: Other
  Country: IN (occurrence: IN)
  Receive Date: 20231130
  Receipt Date: 20231130
  Transmission Date: 20240109
  Serious: Yes (Other)
  Sender: FDA-Public Use
  Company Number: IN-Bion-012389

PATIENT
  Age: 46 Year
  Sex: Male

DRUGS (1)
  1. DICLOFENAC POTASSIUM [Suspect]
     Active Substance: DICLOFENAC POTASSIUM
     Indication: Analgesic therapy
     Route: 048

REACTIONS (2)
  - Intentional product misuse [Unknown]
  - Generalised bullous fixed drug eruption [Recovered/Resolved]
